FAERS Safety Report 12402522 (Version 1)
Quarter: 2016Q2

REPORT INFORMATION
  Report Type: Spontaneous
  Country: US (occurrence: US)
  Receive Date: 20160525
  Receipt Date: 20160525
  Transmission Date: 20160815
  Serious: Yes (Other)
  Sender: FDA-Public Use
  Company Number: US-PFIZER INC-2015380144

PATIENT
  Age: 60 Year
  Sex: Male
  Weight: 86.62 kg

DRUGS (23)
  1. REVATIO [Suspect]
     Active Substance: SILDENAFIL CITRATE
     Dosage: 30 MG, 3X/DAY
     Route: 048
  2. MAGNESIUM CHLORIDE. [Concomitant]
     Active Substance: MAGNESIUM CHLORIDE
     Dosage: 535 MG, DAILY
     Route: 048
  3. ZAROXOLYN [Concomitant]
     Active Substance: METOLAZONE
     Indication: WEIGHT INCREASED
  4. ZOFRAN ODT [Concomitant]
     Active Substance: ONDANSETRON HYDROCHLORIDE
     Dosage: 8 MG, AS NEEDED (TAKE BY MOUTH EVERY 8 HOURS AS NEEDED)
     Route: 048
  5. RANEXA [Concomitant]
     Active Substance: RANOLAZINE
     Dosage: 500 MG, 2X/DAY
     Route: 048
  6. ASPIRIN. [Concomitant]
     Active Substance: ASPIRIN
     Dosage: 81 MG, DAILY
     Route: 048
  7. COREG [Concomitant]
     Active Substance: CARVEDILOL
     Dosage: UNK UNK, 2X/DAY (TAKE 3.125 MG (1 TAB) IN AM) AND 6.125 MG (2 TABS IN EVENING)
  8. ATORVASTATIN CALCIUM. [Concomitant]
     Active Substance: ATORVASTATIN CALCIUM
     Dosage: 40 MG, 1X/DAY (TAKE 40 MG BY MOUTH AT BEDTIME)
     Route: 048
  9. INSPRA [Concomitant]
     Active Substance: EPLERENONE
     Dosage: 50 MG, DAILY
     Route: 048
  10. ZAROXOLYN [Concomitant]
     Active Substance: METOLAZONE
     Indication: FLUID RETENTION
     Dosage: 2.5 MG, DAILY (TAKE 1 TABLET (2.5 MG) DALLY PM FLUID RETENTION. (USES - 2-3 DAY/WK.)
  11. K-DUR [Concomitant]
     Active Substance: POTASSIUM CHLORIDE
     Dosage: 60 MEQ, 2X/DAY (TAKE 60MEQ (3TABS) TWICE DAILY,EXTRA 20 MEQ (1TAB) ON DAYS THAT YOU TAKE METOLAZON )
     Route: 048
  12. REVATIO [Suspect]
     Active Substance: SILDENAFIL CITRATE
     Indication: PULMONARY HYPERTENSION
     Dosage: 40 MG, 3X/DAY
     Route: 048
  13. PANTOPRAZOLE SODIUM. [Concomitant]
     Active Substance: PANTOPRAZOLE SODIUM
     Dosage: 40 MG, 1X/DAY (TAKE 40MG BY MOUTH AT BEDTIME)
     Route: 048
  14. DEMADEX [Concomitant]
     Active Substance: TORSEMIDE
     Dosage: 320 MG, 2X/DAY
     Route: 048
  15. PRIMACOR [Concomitant]
     Active Substance: MILRINONE LACTATE
     Dosage: 35.8 ?G, UNK (INJECT 35.8 MCG/MIN INTO THE VEIN CONTINOUS)
  16. NORVASC [Concomitant]
     Active Substance: AMLODIPINE BESYLATE
     Dosage: 10 MG, 1X/DAY (TAKE 1 TABLET (10 MG) BY MOUTH AT BEDTIME)
     Route: 048
  17. TRAMADOL HCL [Concomitant]
     Active Substance: TRAMADOL HYDROCHLORIDE
     Dosage: 50 MG, AS NEEDED (TAKE 50MG BY MOUTH EVERY 6 HOURS AS NEEDED)
     Route: 048
  18. VIAGRA [Concomitant]
     Active Substance: SILDENAFIL CITRATE
     Dosage: 40 MG, 3X/DAY
     Route: 048
  19. MILK OF MAGNESIA [Concomitant]
     Active Substance: MAGNESIUM HYDROXIDE
     Dosage: 30 ML, AS NEEDED (TAKE 30MLS BY MOUTH DAILY AS NEEDED)
     Route: 048
  20. CENTRUM SILVER [Concomitant]
     Active Substance: MINERALS\VITAMINS
     Dosage: 1 DF, DAILY
     Route: 048
  21. DEMADEX [Concomitant]
     Active Substance: TORSEMIDE
     Dosage: 80 UNK, UNK
     Route: 048
  22. ALPRAZOLAM. [Concomitant]
     Active Substance: ALPRAZOLAM
     Dosage: 0.5 MG, 3X/DAY AS NEEDED (TAKE 0.5 MG BY MOUTH 3 TIMES DAILY AS NEEDED)
     Route: 048
  23. KLOR-CON M [Concomitant]
     Active Substance: POTASSIUM CHLORIDE
     Dosage: 60 MEQ, 2X/DAY (TAKE 60MEQ (3TABS) TWICE DAILY,EXTRA 20 MEQ (1TAB) ON DAYS THAT YOU TAKE METOLAZON)

REACTIONS (6)
  - Left ventricular failure [Unknown]
  - Condition aggravated [Unknown]
  - Product use issue [Unknown]
  - Fluid overload [Unknown]
  - Oedema peripheral [Unknown]
  - Intentional product misuse [Recovered/Resolved]
